FAERS Safety Report 5572453-7 (Version None)
Quarter: 2007Q4

REPORT INFORMATION
  Report Type: 
  Country: None (occurrence: None)
  Receive Date: 20071219
  Receipt Date: 20071213
  Transmission Date: 20080405
  Serious: Yes (Death, Hospitalization, Other)
  Sender: FDA-Public Use
  Company Number: 083-C5013-07120748

PATIENT
  Age: 62 Year
  Sex: Male
  Weight: 61 kg

DRUGS (5)
  1. CC-5013 (LENALIDOMIDE) (CAPSULES) [Suspect]
     Indication: MULTIPLE MYELOMA
     Dosage: 25 MG, DAILY; ORAL
     Route: 048
     Dates: start: 20070927, end: 20071017
  2. DEXAMETHASONE TAB [Concomitant]
  3. AVELOX [Concomitant]
  4. TRAMADOL HCL [Concomitant]
  5. G-CSF (GRANULOCYTE COLONY STIMULATING FACTOR) [Concomitant]

REACTIONS (1)
  - DISEASE PROGRESSION [None]
